FAERS Safety Report 25439505 (Version 2)
Quarter: 2025Q3

REPORT INFORMATION
  Report Type: Spontaneous
  Country: EU (occurrence: EU)
  Receive Date: 20250616
  Receipt Date: 20250710
  Transmission Date: 20251020
  Serious: Yes (Hospitalization, Other)
  Sender: MYLAN
  Company Number: EU-BoehringerIngelheim-2025-BI-014308

PATIENT
  Age: 81 Year
  Sex: Female

DRUGS (4)
  1. DABIGATRAN [Suspect]
     Active Substance: DABIGATRAN
     Indication: Atrial fibrillation
  2. DABIGATRAN [Suspect]
     Active Substance: DABIGATRAN
     Route: 048
  3. DABIGATRAN [Suspect]
     Active Substance: DABIGATRAN
     Route: 048
  4. DABIGATRAN [Suspect]
     Active Substance: DABIGATRAN

REACTIONS (2)
  - Paraparesis [Recovered/Resolved]
  - Spinal epidural haematoma [Recovered/Resolved with Sequelae]
